FAERS Safety Report 8881265 (Version 1)
Quarter: 2012Q4

REPORT INFORMATION
  Report Type: 
  Country: ES (occurrence: ES)
  Receive Date: 20121031
  Receipt Date: 20121031
  Transmission Date: 20130627
  Serious: Yes (Other)
  Sender: FDA-Public Use
  Company Number: ES-ELI_LILLY_AND_COMPANY-ES201210005762

PATIENT
  Sex: Female

DRUGS (2)
  1. FORSTEO [Suspect]
     Dosage: UNK
     Dates: start: 20081205, end: 201006
  2. FORSTEO [Suspect]
     Dosage: UNK
     Dates: start: 20120715

REACTIONS (4)
  - Fall [Unknown]
  - Dislocation of vertebra [Unknown]
  - Drug ineffective [Unknown]
  - Fatigue [Unknown]
